FAERS Safety Report 7687023-4 (Version None)
Quarter: 2011Q3

REPORT INFORMATION
  Report Type: 
  Country: None (occurrence: None)
  Receive Date: 20110816
  Receipt Date: 20110810
  Transmission Date: 20111222
  Serious: Yes (Other)
  Sender: FDA-Public Use
  Company Number: US-SANOFI-AVENTIS-2011SA051865

PATIENT
  Age: 64 Year
  Sex: Female

DRUGS (8)
  1. PLAVIX [Suspect]
     Route: 065
     Dates: start: 20110501
  2. LIPITOR [Concomitant]
  3. METFORMIN HCL [Concomitant]
  4. NIASPAN [Concomitant]
  5. LEVOXYL [Concomitant]
  6. ACETYLSALICYLIC ACID SRT [Concomitant]
  7. PIOGLITAZONE [Concomitant]
  8. LISINOPRIL [Concomitant]

REACTIONS (4)
  - FOOT FRACTURE [None]
  - BREAST CANCER [None]
  - DIZZINESS [None]
  - GAIT DISTURBANCE [None]
